FAERS Safety Report 10173828 (Version 1)
Quarter: 2014Q2

REPORT INFORMATION
  Report Type: Spontaneous
  Country: US (occurrence: None)
  Receive Date: 20140425
  Receipt Date: 20140425
  Transmission Date: 20141212
  Serious: No
  Sender: FDA-Public Use
  Company Number: 1301989

PATIENT
  Age: 51 Year
  Sex: Female
  Weight: 54.89 kg

DRUGS (5)
  1. ZELBORAF [Suspect]
     Indication: THYROID CANCER
     Dosage: 4 TABS IN THE AM AND 4 TABS 12 HOURS LATER (240 MG), ORAL
     Route: 048
     Dates: start: 20131024, end: 20131106
  2. ZELBORAF [Suspect]
     Indication: PAPILLARY THYROID CANCER
     Dosage: 4 TABS IN THE AM AND 4 TABS 12 HOURS LATER (240 MG), ORAL
     Route: 048
     Dates: start: 20131024, end: 20131106
  3. LEVOTHYROXINE (LEVOTHYROXINE SODIUM) [Concomitant]
  4. ZANTAC (RANITIDINE HYDROCHLORIDE) [Concomitant]
  5. MESALAMINE (MESALAZINE) [Concomitant]

REACTIONS (6)
  - Acrochordon [None]
  - Skin papilloma [None]
  - Saliva altered [None]
  - Dysgeusia [None]
  - Arthralgia [None]
  - Fluid retention [None]
